FAERS Safety Report 4631265-9 (Version None)
Quarter: 2005Q2

REPORT INFORMATION
  Report Type: 
  Country: None (occurrence: None)
  Receive Date: 20050406
  Receipt Date: 20050324
  Transmission Date: 20051028
  Serious: Yes (Other)
  Sender: FDA-Public Use
  Company Number: 2005023876

PATIENT
  Age: 38 Year
  Sex: Female

DRUGS (1)
  1. BEXTRA [Suspect]
     Indication: NECK PAIN
     Dosage: 10 MG (10 MG, 1 IN 1 D)

REACTIONS (3)
  - MUCOSAL EROSION [None]
  - SKIN REACTION [None]
  - TONGUE BLISTERING [None]
